FAERS Safety Report 10669685 (Version 1)
Quarter: 2014Q4

REPORT INFORMATION
  Report Type: Spontaneous
  Country: US (occurrence: US)
  Receive Date: 20141222
  Receipt Date: 20141222
  Transmission Date: 20150529
  Serious: No
  Sender: FDA-Public Use
  Company Number: US-GLAXOSMITHKLINE-A1053060A

PATIENT

DRUGS (7)
  1. AVODART [Suspect]
     Active Substance: DUTASTERIDE
     Indication: BENIGN PROSTATIC HYPERPLASIA
     Route: 048
     Dates: start: 2010, end: 201110
  2. CRESTOR [Concomitant]
     Active Substance: ROSUVASTATIN CALCIUM
  3. FINASTERIDE. [Concomitant]
     Active Substance: FINASTERIDE
  4. LEVITRA [Concomitant]
     Active Substance: VARDENAFIL HYDROCHLORIDE TRIHYDRATE
  5. ASPIRIN. [Concomitant]
     Active Substance: ASPIRIN
  6. VITAMINS [Concomitant]
     Active Substance: VITAMINS
  7. TAMSULOSIN HYDROCHLORIDE. [Concomitant]
     Active Substance: TAMSULOSIN HYDROCHLORIDE

REACTIONS (4)
  - Blood testosterone decreased [Unknown]
  - Malaise [Unknown]
  - Erectile dysfunction [Recovering/Resolving]
  - Libido decreased [Unknown]
